FAERS Safety Report 14121153 (Version 4)
Quarter: 2017Q4

REPORT INFORMATION
  Report Type: Spontaneous
  Country: CA (occurrence: CA)
  Receive Date: 20171024
  Receipt Date: 20171113
  Transmission Date: 20180321
  Serious: Yes (Other)
  Sender: FDA-Public Use
  Company Number: CA-CELLTRION HEALTHCARE JAPAN K.K.-2017CA014278

PATIENT

DRUGS (3)
  1. ASACOL [Concomitant]
     Active Substance: MESALAMINE
     Dosage: UNK UNK, TID
     Route: 048
     Dates: start: 1998
  2. PREDNISONE. [Concomitant]
     Active Substance: PREDNISONE
     Dosage: 40 MG, DAILY
     Route: 048
     Dates: start: 20170718
  3. INFLECTRA [Suspect]
     Active Substance: INFLIXIMAB-DYYB
     Indication: COLITIS ULCERATIVE
     Dosage: 400 MG, CYCLIC (AT 0,2,6 WEEKS THEN EVERY 8 WEEKS)
     Route: 042
     Dates: start: 20170901

REACTIONS (14)
  - Eye movement disorder [Unknown]
  - Condition aggravated [Unknown]
  - Pallor [Unknown]
  - Muscle rigidity [Unknown]
  - Colitis ulcerative [Unknown]
  - Influenza [Unknown]
  - Hyperhidrosis [Unknown]
  - Blood pressure decreased [Unknown]
  - Seizure [Unknown]
  - Dizziness [Unknown]
  - Abnormal behaviour [Unknown]
  - Heart rate decreased [Unknown]
  - Unresponsive to stimuli [Unknown]
  - Incoherent [Unknown]

NARRATIVE: CASE EVENT DATE: 201710
